FAERS Safety Report 5450367-0 (Version None)
Quarter: 2007Q3

REPORT INFORMATION
  Report Type: 
  Country: None (occurrence: None)
  Receive Date: 20070912
  Receipt Date: 20070830
  Transmission Date: 20080115
  Serious: Yes (Hospitalization)
  Sender: FDA-Public Use
  Company Number: BR-SHR-BR-2007-032889

PATIENT
  Age: 32 Year
  Sex: Female

DRUGS (1)
  1. BETAFERON [Suspect]
     Dosage: 8 MIU, UNK
     Route: 058
     Dates: start: 20000101

REACTIONS (1)
  - CELLULITIS [None]
